FAERS Safety Report 24706757 (Version 1)
Quarter: 2024Q4

REPORT INFORMATION
  Report Type: Spontaneous
  Country: CA (occurrence: CA)
  Receive Date: 20241206
  Receipt Date: 20241206
  Transmission Date: 20250114
  Serious: Yes (Other)
  Sender: PFIZER
  Company Number: CA-PFIZER INC-PV202400055132

PATIENT
  Age: 41 Year
  Sex: Male

DRUGS (2)
  1. LORBRENA [Suspect]
     Active Substance: LORLATINIB
     Indication: Lung cancer metastatic
     Dosage: 75 MG, 1X/DAY
     Route: 048
     Dates: start: 20240502
  2. LORBRENA [Suspect]
     Active Substance: LORLATINIB
     Indication: Non-small cell lung cancer

REACTIONS (4)
  - Diabetes mellitus [Unknown]
  - Dyspnoea exertional [Recovering/Resolving]
  - Oedema [Recovering/Resolving]
  - Hypertension [Not Recovered/Not Resolved]
